FAERS Safety Report 6332360-9 (Version None)
Quarter: 2009Q3

REPORT INFORMATION
  Report Type: 
  Country: None (occurrence: None)
  Receive Date: 20090828
  Receipt Date: 20090825
  Transmission Date: 20100115
  Serious: Yes (Hospitalization)
  Sender: FDA-Public Use
  Company Number: FR-BRISTOL-MYERS SQUIBB COMPANY-14754659

PATIENT
  Age: 45 Year
  Sex: Female

DRUGS (3)
  1. TAXOL [Suspect]
     Indication: BREAST CANCER METASTATIC
     Dosage: RECEIVED TAXOL FOR ATLEAST 6 MONTHS
  2. RADIOTHERAPY [Suspect]
  3. AVASTIN [Concomitant]

REACTIONS (1)
  - MYELITIS [None]
